FAERS Safety Report 14100930 (Version 2)
Quarter: 2018Q2

REPORT INFORMATION
  Report Type: Spontaneous
  Country: DE (occurrence: DE)
  Receive Date: 20171018
  Receipt Date: 20180424
  Transmission Date: 20180711
  Serious: Yes (Hospitalization)
  Sender: FDA-Public Use
  Company Number: DE-TORRENT-00007203

PATIENT
  Age: 5 Year
  Sex: Male
  Weight: 34 kg

DRUGS (8)
  1. CIRCADIN [Concomitant]
     Active Substance: MELATONIN
     Indication: PRODUCT USED FOR UNKNOWN INDICATION
     Dosage: DAILY DOSE: 6 MG?MILLGRAM(S) EVERY?DAYS
     Route: 065
  2. SALBUTAMOL [Suspect]
     Active Substance: ALBUTEROL
     Indication: EPILEPSY
     Dosage: DAILY DOSE: 4 DF?DOSAGE FORM EVERY?2 DAYS
     Route: 065
  3. CLOBAZAM [Suspect]
     Active Substance: CLOBAZAM
     Indication: EPILEPSY
     Dosage: 3-0-8
     Route: 048
  4. L-THYROXINE [Concomitant]
     Active Substance: LEVOTHYROXINE
     Indication: PRODUCT USED FOR UNKNOWN INDICATION
     Dosage: DAILY DOSE: 50 G?MICROGRAM(S) EVERY?DAYS
     Route: 065
  5. TOPIRAMAT [Suspect]
     Active Substance: TOPIRAMATE
     Indication: EPILEPSY
     Dosage: 240 MG MILLIGRAM(S) EVERY DAY
     Route: 048
  6. HYDROCORTISON [Concomitant]
     Active Substance: HYDROCORTISONE
     Indication: PRODUCT USED FOR UNKNOWN INDICATION
     Dosage: 5-2.5-2.5
     Route: 065
  7. VALPROATE [Suspect]
     Active Substance: VALPROIC ACID
     Indication: EPILEPSY
     Dosage: DAILY DOSE: 825 MG MILLIGRAM(S) EVERY DAY
     Route: 048
  8. SULTIAME [Suspect]
     Active Substance: SULTHIAME
     Indication: EPILEPSY
     Dosage: DAILY DOSE: 200 MG MILLGRAM(S) EVERY DAYS
     Route: 048

REACTIONS (4)
  - Disturbance in attention [Recovered/Resolved]
  - Drug intolerance [Unknown]
  - Epilepsy [Recovered/Resolved]
  - Bronchitis [Recovering/Resolving]

NARRATIVE: CASE EVENT DATE: 20160703
